FAERS Safety Report 10454636 (Version 1)
Quarter: 2014Q3

REPORT INFORMATION
  Report Type: Report from Study
  Country: BR (occurrence: BR)
  Receive Date: 20140915
  Receipt Date: 20140915
  Transmission Date: 20150326
  Serious: Yes (Death, Other)
  Sender: FDA-Public Use
  Company Number: PHHY2014BR119153

PATIENT
  Age: 89 Year
  Sex: Female
  Weight: 85 kg

DRUGS (5)
  1. EXELON PATCH [Suspect]
     Active Substance: RIVASTIGMINE
     Indication: DEMENTIA ALZHEIMER^S TYPE
     Dosage: 9.5 MG (PATCH 10 CM2), DAILY
     Route: 062
  2. RISPERIDONE. [Concomitant]
     Active Substance: RISPERIDONE
     Indication: SLEEP DISORDER
  3. RISPERIDONE. [Concomitant]
     Active Substance: RISPERIDONE
     Indication: MEMORY IMPAIRMENT
  4. AKINETON [Concomitant]
     Active Substance: BIPERIDEN HYDROCHLORIDE
     Indication: PARKINSON^S DISEASE
     Dosage: 2 DF (2 TABLETS), BID (IN THE MORNING AND AT NIGHT)
  5. RISPERIDONE. [Concomitant]
     Active Substance: RISPERIDONE
     Indication: ANXIETY
     Dosage: 2 ML, QD (AT NIGHT)

REACTIONS (6)
  - Speech disorder [Unknown]
  - Pain in extremity [Unknown]
  - Dysstasia [Unknown]
  - Gait disturbance [Unknown]
  - Multi-organ failure [Fatal]
  - Muscular weakness [Unknown]

NARRATIVE: CASE EVENT DATE: 20140904
